FAERS Safety Report 4913002-3 (Version None)
Quarter: 2006Q1

REPORT INFORMATION
  Report Type: 
  Country: None (occurrence: None)
  Receive Date: 20060215
  Receipt Date: 20050810
  Transmission Date: 20060701
  Serious: Yes (Hospitalization)
  Sender: FDA-Public Use
  Company Number: CH-BRISTOL-MYERS SQUIBB COMPANY-13279344

PATIENT
  Age: 50 Year
  Sex: Male

DRUGS (6)
  1. TRITTICO [Suspect]
     Route: 048
     Dates: start: 20050615, end: 20050615
  2. TRUXAL [Suspect]
     Dates: start: 20050615, end: 20050615
  3. TEMESTA [Suspect]
     Dates: start: 20050615, end: 20050615
  4. TRANXILIUM [Suspect]
     Route: 048
     Dates: start: 20050615, end: 20050615
  5. IMOVANE [Suspect]
     Route: 048
     Dates: start: 20050615, end: 20050615
  6. CIPRALEX [Concomitant]
     Dates: end: 20050615

REACTIONS (2)
  - DEPRESSED LEVEL OF CONSCIOUSNESS [None]
  - SUICIDE ATTEMPT [None]
